FAERS Safety Report 7561962-7 (Version None)
Quarter: 2011Q2

REPORT INFORMATION
  Report Type: 
  Country: None (occurrence: None)
  Receive Date: 20110621
  Receipt Date: 20110613
  Transmission Date: 20111010
  Serious: Yes (Hospitalization, Other)
  Sender: FDA-Public Use
  Company Number: US-RB-027181-11

PATIENT
  Age: 47 Year
  Sex: Male

DRUGS (2)
  1. SUBOXONE [Suspect]
     Indication: DRUG DEPENDENCE
     Route: 060
     Dates: start: 20110301, end: 20110601
  2. XANAX [Suspect]
     Indication: DRUG DEPENDENCE
     Dosage: 4 TABLETS
     Route: 048
     Dates: start: 20110501, end: 20110501

REACTIONS (7)
  - TONGUE BITING [None]
  - EATING DISORDER [None]
  - CONVULSION [None]
  - CARDIAC FLUTTER [None]
  - HALLUCINATION [None]
  - INSOMNIA [None]
  - DRUG ABUSE [None]
